FAERS Safety Report 14833665 (Version 1)
Quarter: 2018Q2

REPORT INFORMATION
  Report Type: Spontaneous
  Country: US (occurrence: US)
  Receive Date: 20180411
  Receipt Date: 20180411
  Transmission Date: 20180711
  Serious: Yes (Other)
  Sender: FDA-Public Use
  Company Number: None

PATIENT
  Age: 59 Year
  Sex: Female
  Weight: 86.85 kg

DRUGS (2)
  1. GEMCITABINE [Suspect]
     Active Substance: GEMCITABINE\GEMCITABINE HYDROCHLORIDE
     Indication: PANCREATIC CARCINOMA
     Dosage: OTHER FREQUENCY:ON DAYS 1, 8, 15;?
     Route: 042
     Dates: start: 20180228, end: 20180410
  2. ABRAXANE [Suspect]
     Active Substance: PACLITAXEL
     Indication: PANCREATIC CARCINOMA
     Dosage: ?          OTHER FREQUENCY:ON DAYS 1, 8, 15;?
     Route: 042
     Dates: start: 20180228, end: 20180410

REACTIONS (1)
  - Disease progression [None]
